FAERS Safety Report 23514317 (Version 1)
Quarter: 2024Q1

REPORT INFORMATION
  Report Type: Spontaneous
  Country: GB (occurrence: GB)
  Receive Date: 20240212
  Receipt Date: 20240212
  Transmission Date: 20240410
  Serious: Yes (Other)
  Sender: FDA-Public Use
  Company Number: GB-B.Braun Medical Inc.-2153068

PATIENT
  Sex: Male
  Weight: 75 kg

DRUGS (7)
  1. ACETAMINOPHEN [Suspect]
     Active Substance: ACETAMINOPHEN
  2. ALLOPURINOL [Concomitant]
     Active Substance: ALLOPURINOL
  3. ROSUVASTATIN [Concomitant]
     Active Substance: ROSUVASTATIN
  4. NEBIVOLOL [Concomitant]
     Active Substance: NEBIVOLOL
  5. LANSOPRAZOLE [Concomitant]
     Active Substance: LANSOPRAZOLE
  6. ISOSORBIDE [Concomitant]
     Active Substance: ISOSORBIDE
  7. ASPIRIN [Concomitant]
     Active Substance: ASPIRIN

REACTIONS (1)
  - Craniocerebral injury [Recovered/Resolved]
